FAERS Safety Report 10077077 (Version 1)
Quarter: 2014Q2

REPORT INFORMATION
  Report Type: Spontaneous
  Country: GB (occurrence: None)
  Receive Date: 20140410
  Receipt Date: 20140410
  Transmission Date: 20141212
  Serious: Yes (Disabling, Other)
  Sender: FDA-Public Use
  Company Number: GB-AIKEM-000542

PATIENT
  Age: 59 Year
  Sex: Female
  Weight: 72 kg

DRUGS (8)
  1. QUETIAPINE (QUETIAPINE) [Suspect]
     Indication: CYCLOTHYMIC DISORDER
     Route: 048
     Dates: start: 201310, end: 201401
  2. THYROXINE (THYROXINE) [Suspect]
     Indication: PRODUCT USED FOR UNKNOWN INDICATION
     Route: 048
  3. LANSOPRAZOLE (LANSOPRAZOLE) [Concomitant]
  4. OESTROGEN (OESTROGEN) [Concomitant]
  5. ZOPICLONE (ZOPICLONE) [Concomitant]
  6. VISCOTEARS (VISCOTEARS) [Concomitant]
  7. TRAZODONE (TRAZODONE) [Concomitant]
  8. DHC-CONTINUS (DHC-CONTINUS) [Concomitant]

REACTIONS (26)
  - Hypothyroidism [None]
  - Constipation [None]
  - Hypertension [None]
  - Hypothermia [None]
  - Tremor [None]
  - Mental disorder [None]
  - Speech disorder [None]
  - Anxiety [None]
  - Suicidal ideation [None]
  - Pruritus [None]
  - Arthralgia [None]
  - Myalgia [None]
  - Lethargy [None]
  - Tongue discolouration [None]
  - Glossodynia [None]
  - Amnesia [None]
  - Feeling abnormal [None]
  - Urinary tract infection [None]
  - Ear infection [None]
  - Pharyngitis [None]
  - Asthenia [None]
  - Condition aggravated [None]
  - Headache [None]
  - Vision blurred [None]
  - Basedow^s disease [None]
  - Fasciitis [None]
